FAERS Safety Report 11430525 (Version 1)
Quarter: 2015Q3

REPORT INFORMATION
  Report Type: Spontaneous
  Country: US (occurrence: US)
  Receive Date: 20150828
  Receipt Date: 20150828
  Transmission Date: 20151125
  Serious: No
  Sender: FDA-Public Use
  Company Number: US-ROCHE-1203851

PATIENT
  Sex: Female

DRUGS (4)
  1. PEGASYS [Suspect]
     Active Substance: PEGINTERFERON ALFA-2A
     Indication: CHRONIC HEPATITIS C
     Route: 065
     Dates: start: 20130315
  2. RIBAVIRIN. [Suspect]
     Active Substance: RIBAVIRIN
     Indication: CHRONIC HEPATITIS C
     Dosage: A.M.
     Route: 065
     Dates: start: 20130315
  3. TELAPREVIR [Suspect]
     Active Substance: TELAPREVIR
     Indication: CHRONIC HEPATITIS C
     Dosage: 9 A.M. 1 P.M.  AND 5 P.M.
     Route: 065
     Dates: start: 20130316
  4. RIBAVIRIN. [Suspect]
     Active Substance: RIBAVIRIN
     Dosage: P.M.
     Route: 065
     Dates: start: 20130315

REACTIONS (3)
  - Pallor [Unknown]
  - Proctalgia [Unknown]
  - Nausea [Unknown]
